FAERS Safety Report 25920443 (Version 1)
Quarter: 2025Q4

REPORT INFORMATION
  Report Type: Spontaneous
  Country: EU (occurrence: EU)
  Receive Date: 20251014
  Receipt Date: 20251014
  Transmission Date: 20260118
  Serious: Yes (Other)
  Sender: BRISTOL-MYERS SQUIBB COMPANY
  Company Number: EU-JNJFOC-20251010273

PATIENT
  Age: 68 Year
  Sex: Male
  Weight: 118 kg

DRUGS (7)
  1. REVLIMID [Suspect]
     Active Substance: LENALIDOMIDE
     Indication: Plasma cell myeloma
     Dosage: THERAPY END DATE: 02-SEP-2019
  2. REVLIMID [Suspect]
     Active Substance: LENALIDOMIDE
     Dates: start: 20190917, end: 20190924
  3. REVLIMID [Suspect]
     Active Substance: LENALIDOMIDE
     Dates: start: 20190925, end: 20200408
  4. REVLIMID [Suspect]
     Active Substance: LENALIDOMIDE
     Dates: start: 20200416, end: 20250624
  5. TOLODODEKIN ALFA [Suspect]
     Active Substance: TOLODODEKIN ALFA
     Indication: Plasma cell myeloma
     Dates: start: 20190618, end: 20220915
  6. DEXAMETHASONE [Suspect]
     Active Substance: DEXAMETHASONE
     Indication: Plasma cell myeloma
     Dates: start: 20190618, end: 20200430
  7. BORTEZOMIB [Suspect]
     Active Substance: BORTEZOMIB
     Indication: Plasma cell myeloma
     Dates: start: 20190618, end: 20190920

REACTIONS (1)
  - Malignant melanoma [Not Recovered/Not Resolved]

NARRATIVE: CASE EVENT DATE: 20250528
